FAERS Safety Report 8644068 (Version 2)
Quarter: 2012Q4

REPORT INFORMATION
  Report Type: 
  Country: FR (occurrence: FR)
  Receive Date: 20120629
  Receipt Date: 20121006
  Transmission Date: 20130627
  Serious: Yes (Hospitalization, Other)
  Sender: FDA-Public Use
  Company Number: FR-UCBSA-060385

PATIENT
  Age: 65 Year
  Sex: Male

DRUGS (6)
  1. VIMPAT [Suspect]
     Dosage: DOSE/INTAKE: 1UNIT, TWICE DAILY
     Route: 048
  2. KEPPRA [Suspect]
     Dosage: DOSE STRENGTH :500 MG, 1 UNIT, TWICE DAILY
     Route: 048
  3. KEPPRA [Suspect]
     Dosage: DOSE REDUCED
     Route: 048
  4. DIFFU K [Concomitant]
     Dosage: 3 UNITS DAILY
  5. ASPEGIC [Concomitant]
  6. TERCIAN [Concomitant]
     Dosage: 5+15+10 ORAL DROPS

REACTIONS (6)
  - Delirium [Recovered/Resolved]
  - Toxic encephalopathy [Recovered/Resolved]
  - Joint injury [Recovered/Resolved]
  - Fall [Recovered/Resolved]
  - Persecutory delusion [Recovered/Resolved]
  - Memory impairment [Recovered/Resolved]
